FAERS Safety Report 11203955 (Version 2)
Quarter: 2015Q2

REPORT INFORMATION
  Report Type: Spontaneous
  Country: FI (occurrence: FI)
  Receive Date: 20150619
  Receipt Date: 20150622
  Transmission Date: 20150821
  Serious: Yes (Other)
  Sender: FDA-Public Use
  Company Number: PHHY2015FI071741

PATIENT
  Age: 61 Year
  Sex: Male

DRUGS (5)
  1. EXELON [Suspect]
     Active Substance: RIVASTIGMINE TARTRATE
     Indication: MEMORY IMPAIRMENT
     Dosage: 6 MG, BID (IN THE MORNING AND IN THE EVENING)
     Route: 065
  2. ALFUZOSIN SANDOZ [Concomitant]
     Active Substance: ALFUZOSIN
     Indication: PRODUCT USED FOR UNKNOWN INDICATION
     Dosage: 1 DF (10 MG), QD (IN THE EVENING)
     Route: 065
  3. LEVOFLOXACIN ACTAVIS [Suspect]
     Active Substance: LEVOFLOXACIN
     Indication: PROSTATE INFECTION
     Dosage: 1 DF, QD (IN THE EVENING)
     Route: 065
  4. MIRTAZAPIN ORION [Suspect]
     Active Substance: MIRTAZAPINE
     Indication: DEPRESSION
     Dosage: 1 DF, QD (IN THE EVENING)
     Route: 065
  5. SIMVASTATIN RATIOPHARM [Concomitant]
     Active Substance: SIMVASTATIN
     Indication: PRODUCT USED FOR UNKNOWN INDICATION
     Dosage: 1 DF (10 MG), QD (IN THE EVENING)
     Route: 065

REACTIONS (9)
  - Abnormal behaviour [Recovering/Resolving]
  - Depression [Unknown]
  - Asthenia [Unknown]
  - Overweight [Unknown]
  - Back pain [Recovering/Resolving]
  - Diarrhoea [Recovered/Resolved]
  - Fatigue [Recovering/Resolving]
  - Drug ineffective [Unknown]
  - Prostate infection [Unknown]
